FAERS Safety Report 6184482-3 (Version None)
Quarter: 2009Q2

REPORT INFORMATION
  Report Type: 
  Country: None (occurrence: None)
  Receive Date: 20090508
  Receipt Date: 20090427
  Transmission Date: 20091009
  Serious: Yes (Disabling, Other)
  Sender: FDA-Public Use
  Company Number: CA-PFIZER INC-2009165660

PATIENT
  Age: 36 Year

DRUGS (16)
  1. ZELDOX [Suspect]
     Indication: BIPOLAR II DISORDER
     Dosage: 80 MG, 2X/DAY
     Route: 048
     Dates: start: 20080401, end: 20090101
  2. CYMBALTA [Concomitant]
     Indication: BIPOLAR II DISORDER
     Dosage: 120 MG, UNK
  3. CYMBALTA [Concomitant]
     Indication: DEPRESSION
  4. CYMBALTA [Concomitant]
     Indication: POST-TRAUMATIC STRESS DISORDER
  5. TEMAZEPAM [Concomitant]
     Indication: BIPOLAR II DISORDER
     Dosage: 60 MG, UNK
  6. TEMAZEPAM [Concomitant]
     Indication: DEPRESSION
  7. TEMAZEPAM [Concomitant]
     Indication: POST-TRAUMATIC STRESS DISORDER
  8. CESAMET [Concomitant]
     Indication: BIPOLAR II DISORDER
     Dosage: 3 MG, UNK
  9. CESAMET [Concomitant]
     Indication: DEPRESSION
  10. CESAMET [Concomitant]
     Indication: POST-TRAUMATIC STRESS DISORDER
  11. LAMOTRIGINE [Concomitant]
     Indication: BIPOLAR II DISORDER
     Dosage: 400 MG, UNK
  12. LAMOTRIGINE [Concomitant]
     Indication: DEPRESSION
  13. LAMOTRIGINE [Concomitant]
     Indication: POST-TRAUMATIC STRESS DISORDER
  14. SEROQUEL [Concomitant]
     Indication: BIPOLAR II DISORDER
     Dosage: 600 MG, UNK
  15. SEROQUEL [Concomitant]
     Indication: DEPRESSION
  16. SEROQUEL [Concomitant]
     Indication: POST-TRAUMATIC STRESS DISORDER

REACTIONS (3)
  - AGITATION [None]
  - TARDIVE DYSKINESIA [None]
  - WEIGHT DECREASED [None]
